FAERS Safety Report 8147599-X (Version None)
Quarter: 2012Q1

REPORT INFORMATION
  Report Type: 
  Country: None (occurrence: None)
  Receive Date: 20120218
  Receipt Date: 20120207
  Transmission Date: 20120608
  Serious: Yes (Hospitalization, Other)
  Sender: FDA-Public Use
  Company Number: AR-AMGEN-ARGSP2012008744

PATIENT
  Age: 65 Year
  Sex: Female

DRUGS (5)
  1. SALMETEROL/FLUTICASONPROPIONAAT [Concomitant]
     Dosage: UNK
  2. SPIRIVA [Concomitant]
     Dosage: UNK
  3. LEFLUNOMIDE [Concomitant]
     Dosage: UNK
  4. ENBREL [Suspect]
     Dosage: 50 MG, UNK
     Route: 058
     Dates: start: 20120101
  5. ENBREL [Suspect]
     Indication: RHEUMATOID ARTHRITIS
     Dosage: 50 MG EVERY TEN DAYS
     Route: 058
     Dates: start: 20100728, end: 20111001

REACTIONS (2)
  - ASTHMATIC CRISIS [None]
  - PNEUMONIA [None]
